FAERS Safety Report 5223313-2 (Version None)
Quarter: 2007Q1

REPORT INFORMATION
  Report Type: 
  Country: None (occurrence: None)
  Receive Date: 20070125
  Receipt Date: 20070122
  Transmission Date: 20070707
  Serious: Yes (Other)
  Sender: FDA-Public Use
  Company Number: 231308

PATIENT
  Age: 50 Year
  Sex: Male

DRUGS (1)
  1. RAPTIVA [Suspect]
     Indication: PSORIASIS
     Dates: start: 20060705

REACTIONS (3)
  - ARTHRITIS BACTERIAL [None]
  - GOUT [None]
  - TENOSYNOVITIS [None]
